FAERS Safety Report 16233106 (Version 2)
Quarter: 2019Q2

REPORT INFORMATION
  Report Type: Spontaneous
  Country: US (occurrence: US)
  Receive Date: 20190424
  Receipt Date: 20190508
  Transmission Date: 20190711
  Serious: No
  Sender: FDA-Public Use
  Company Number: US-PFIZER INC-2016582243

PATIENT
  Age: 47 Year
  Sex: Female

DRUGS (16)
  1. LYRICA [Suspect]
     Active Substance: PREGABALIN
     Indication: MUSCULOSKELETAL STIFFNESS
     Dosage: 100 MG, 2X/DAY
     Route: 048
  2. AXERT [Concomitant]
     Active Substance: ALMOTRIPTAN MALATE
     Indication: HEADACHE
     Dosage: 12.5 MG, AS NEEDED (1 AT ONSET OF HEADACHE, MAY REPEAT ONCE AFTER 2 HOURS IF NEEDED)
     Route: 048
  3. XANAX [Concomitant]
     Active Substance: ALPRAZOLAM
     Indication: ANXIETY
     Dosage: UNK, AS NEEDED (1/2 TO 1 TAB AS NEEDED, MAY TAKE EVERY 8 HOURS PRN)
  4. VITAMIN B12 [Concomitant]
     Active Substance: CYANOCOBALAMIN
     Dosage: 2500 UG, DAILY
     Route: 048
  5. LYRICA [Suspect]
     Active Substance: PREGABALIN
     Indication: PAIN
     Dosage: 100 MG, 3X/DAY (1 CAPSULE EVERY 8 HOURS)
     Route: 048
     Dates: start: 20170511
  6. CRANBERRY. [Concomitant]
     Active Substance: CRANBERRY
     Dosage: 400 MG, DAILY
     Route: 048
  7. PRILOSEC [Concomitant]
     Active Substance: OMEPRAZOLE MAGNESIUM
     Dosage: 40 MG, 2X/DAY
     Route: 048
  8. LYRICA [Suspect]
     Active Substance: PREGABALIN
     Indication: CERVICOGENIC HEADACHE
     Dosage: 75 MG, 3X/DAY
     Route: 048
  9. LYRICA [Suspect]
     Active Substance: PREGABALIN
     Indication: MYALGIA
  10. LYRICA [Suspect]
     Active Substance: PREGABALIN
     Indication: NEURALGIA
     Dosage: 75 MG, 2X/DAY
     Dates: start: 20161207
  11. LYRICA [Suspect]
     Active Substance: PREGABALIN
     Indication: MYALGIA
  12. NAPROSYN [Concomitant]
     Active Substance: NAPROXEN
     Dosage: 500 MG, 2X/DAY
     Route: 048
  13. VITAMIN-B COMPLEX [Concomitant]
     Dosage: 1 DF, DAILY
     Route: 048
  14. MS CONTIN [Concomitant]
     Active Substance: MORPHINE SULFATE
     Indication: PAIN
     Dosage: 15 MG, 3X/DAY (EVERY 8 HOURS)
     Route: 048
  15. OXYCODONE [Concomitant]
     Active Substance: OXYCODONE
     Indication: PAIN
     Dosage: 15 MG, AS NEEDED (1 TAB EVERY 12 HOURS AS NEEDED)
     Route: 048
  16. CHOLECALCIFEROL [Concomitant]
     Active Substance: CHOLECALCIFEROL
     Dosage: 2000 IU, 1X/DAY
     Route: 048

REACTIONS (2)
  - Skin exfoliation [Unknown]
  - Drug intolerance [Unknown]
